FAERS Safety Report 17665130 (Version 1)
Quarter: 2020Q2

REPORT INFORMATION
  Report Type: Spontaneous
  Country: CN (occurrence: CN)
  Receive Date: 20200414
  Receipt Date: 20200414
  Transmission Date: 20200713
  Serious: Yes (Hospitalization, Other)
  Sender: FDA-Public Use
  Company Number: CN-PFIZER INC-2020152054

PATIENT
  Age: 17 Year
  Sex: Male
  Weight: 53 kg

DRUGS (1)
  1. METHOTREXATE. [Suspect]
     Active Substance: METHOTREXATE
     Indication: BONE SARCOMA
     Dosage: 16 G, 1X/DAY
     Route: 041
     Dates: start: 20200217, end: 20200217

REACTIONS (3)
  - Bone marrow failure [Recovering/Resolving]
  - Eating disorder [Unknown]
  - Mucosal erosion [Unknown]

NARRATIVE: CASE EVENT DATE: 20200217
